FAERS Safety Report 5475594-8 (Version None)
Quarter: 2007Q3

REPORT INFORMATION
  Report Type: 
  Country: None (occurrence: None)
  Receive Date: 20070912
  Receipt Date: 20070305
  Transmission Date: 20080115
  Serious: Yes (Other)
  Sender: FDA-Public Use
  Company Number: 2007017126

PATIENT
  Age: 19 Year
  Sex: Female

DRUGS (1)
  1. CYTOTEC [Suspect]
     Indication: ABORTION INDUCED
     Dates: start: 20061218

REACTIONS (6)
  - BLOOD IRON DECREASED [None]
  - DIZZINESS [None]
  - HAEMOGLOBIN DECREASED [None]
  - METRORRHAGIA [None]
  - VAGINAL DISCHARGE [None]
  - VAGINAL HAEMORRHAGE [None]
